FAERS Safety Report 6735614-7 (Version None)
Quarter: 2010Q2

REPORT INFORMATION
  Report Type: 
  Country: None (occurrence: None)
  Receive Date: 20100519
  Receipt Date: 20100504
  Transmission Date: 20101027
  Serious: Yes (Disabling)
  Sender: FDA-Public Use
  Company Number: 2010-1626

PATIENT
  Age: 12 Year
  Sex: Male
  Weight: 20 kg

DRUGS (1)
  1. DYSPORT [Suspect]
     Indication: CEREBRAL PALSY
     Dosage: 200 UNITS (200 UNITS, SINGLE CYCLE), INTRAMUSCULAR
     Route: 030

REACTIONS (3)
  - MUSCULAR WEAKNESS [None]
  - PAIN IN EXTREMITY [None]
  - PYREXIA [None]
